FAERS Safety Report 5963602-7 (Version None)
Quarter: 2008Q4

REPORT INFORMATION
  Report Type: 
  Country: None (occurrence: None)
  Receive Date: 20081124
  Receipt Date: 20081118
  Transmission Date: 20090506
  Serious: Yes (Disabling, Other)
  Sender: FDA-Public Use
  Company Number: US-MERCK-0811USA01295

PATIENT
  Age: 55 Year
  Sex: Male

DRUGS (1)
  1. ZETIA [Suspect]
     Indication: BLOOD CHOLESTEROL
     Route: 048
     Dates: start: 20021101

REACTIONS (2)
  - INTERVERTEBRAL DISC PROTRUSION [None]
  - MYOCARDIAL INFARCTION [None]
